FAERS Safety Report 5829644-7 (Version None)
Quarter: 2008Q3

REPORT INFORMATION
  Report Type: 
  Country: None (occurrence: None)
  Receive Date: 20080731
  Receipt Date: 20080724
  Transmission Date: 20090109
  Serious: Yes (Hospitalization)
  Sender: FDA-Public Use
  Company Number: FR-PFIZER INC-2008062659

PATIENT
  Sex: Female
  Weight: 53 kg

DRUGS (6)
  1. SU-011,248 [Suspect]
     Indication: SQUAMOUS CELL CARCINOMA
     Dosage: DAILY DOSE:37.5MG
     Route: 048
  2. PARACETAMOL [Concomitant]
  3. NICARDIPINE HYDROCHLORIDE [Concomitant]
  4. ZOLPIDEM TARTRATE [Concomitant]
  5. OXAZEPAM [Concomitant]
  6. METRONIDAZOLE HCL [Concomitant]

REACTIONS (2)
  - DYSPHAGIA [None]
  - DYSPNOEA [None]
